FAERS Safety Report 7178427-7 (Version None)
Quarter: 2010Q4

REPORT INFORMATION
  Report Type: 
  Country: None (occurrence: None)
  Receive Date: 20101220
  Receipt Date: 20101208
  Transmission Date: 20110411
  Serious: Yes (Death, Other)
  Sender: FDA-Public Use
  Company Number: US-WATSON-2010-15836

PATIENT
  Sex: Male
  Weight: 114 kg

DRUGS (3)
  1. FENTANYL-50 [Suspect]
     Indication: DRUG ABUSE
     Dosage: UNK
     Route: 062
  2. VICODIN [Suspect]
     Indication: BACK PAIN
  3. XANAX [Concomitant]
     Indication: ANXIETY

REACTIONS (7)
  - CARDIOMEGALY [None]
  - DRUG ABUSE [None]
  - HEADACHE [None]
  - HYDROCEPHALUS [None]
  - PLEURAL EFFUSION [None]
  - RESPIRATORY ARREST [None]
  - SUDDEN DEATH [None]
